FAERS Safety Report 9188232 (Version 1)
Quarter: 2013Q1

REPORT INFORMATION
  Report Type: Spontaneous
  Country: US (occurrence: US)
  Receive Date: 20130325
  Receipt Date: 20130325
  Transmission Date: 20140127
  Serious: Yes (Other)
  Sender: FDA-Public Use
  Company Number: US-PFIZER INC-2013093571

PATIENT
  Age: 64 Year
  Sex: Female
  Weight: 81.2 kg

DRUGS (9)
  1. ZOLOFT [Suspect]
     Indication: POST-TRAUMATIC STRESS DISORDER
     Dosage: 100MG DAILY
  2. ZOLOFT [Suspect]
     Indication: MAJOR DEPRESSION
  3. CYMBALTA [Concomitant]
     Dosage: UNK
  4. VALIUM [Concomitant]
     Dosage: 5 MG, UNK
  5. SYNTHROID [Concomitant]
     Dosage: UNK
  6. TYLENOL 4 [Concomitant]
     Dosage: UNK
  7. PROPAN [Concomitant]
     Dosage: UNK
  8. CALCIUM [Concomitant]
     Dosage: UNK
  9. FEMARA [Concomitant]
     Dosage: UNK

REACTIONS (2)
  - Drug dependence [Unknown]
  - Feeling abnormal [Unknown]
